FAERS Safety Report 8122786-5 (Version None)
Quarter: 2012Q1

REPORT INFORMATION
  Report Type: 
  Country: None (occurrence: None)
  Receive Date: 20120208
  Receipt Date: 20120202
  Transmission Date: 20120608
  Serious: No
  Sender: FDA-Public Use
  Company Number: US-BIOGENIDEC-2012BI004419

PATIENT
  Age: 46 Year
  Sex: Female

DRUGS (2)
  1. TYSABRI [Suspect]
     Indication: MULTIPLE SCLEROSIS
     Route: 042
     Dates: start: 20020101, end: 20050101
  2. TYSABRI [Suspect]
     Route: 042
     Dates: start: 20070222

REACTIONS (2)
  - NASAL CONGESTION [None]
  - RESPIRATORY TRACT CONGESTION [None]
